FAERS Safety Report 8841223 (Version 3)
Quarter: 2012Q4

REPORT INFORMATION
  Report Type: 
  Country: JP (occurrence: JP)
  Receive Date: 20121015
  Receipt Date: 20121219
  Transmission Date: 20130627
  Serious: Yes (Hospitalization)
  Sender: FDA-Public Use
  Company Number: JP-ROCHE-1143474

PATIENT
  Age: 61 Year
  Sex: Male
  Weight: 72 kg

DRUGS (6)
  1. ROCEPHIN [Suspect]
     Indication: URINARY TRACT INFECTION
     Dosage: Dosage is uncertain.
     Route: 042
     Dates: start: 20111026
  2. ROCEPHIN [Suspect]
     Indication: URINARY TRACT INFECTION
     Route: 042
     Dates: start: 20111029, end: 20111101
  3. ROCEPHIN [Suspect]
     Indication: URINARY TRACT INFECTION
     Route: 042
     Dates: start: 20111102, end: 20111108
  4. ACETAMINOPHEN [Suspect]
     Indication: PYREXIA
     Dosage: Dosage is uncertain.
     Route: 048
     Dates: start: 20111025, end: 20111027
  5. TOSUFLOXACIN [Suspect]
     Indication: URINARY TRACT INFECTION
     Dosage: Dosage is uncertain.
     Route: 065
     Dates: start: 20111026, end: 20111028
  6. IOPAMIDOL [Suspect]
     Indication: PRODUCT USED FOR UNKNOWN INDICATION
     Dosage: Dosage is uncertain.
     Route: 065

REACTIONS (1)
  - Tubulointerstitial nephritis [Recovering/Resolving]
